FAERS Safety Report 4592061-4 (Version None)
Quarter: 2005Q1

REPORT INFORMATION
  Report Type: 
  Country: None (occurrence: None)
  Receive Date: 20050125
  Receipt Date: 20041101
  Transmission Date: 20050727
  Serious: No
  Sender: FDA-Public Use
  Company Number: USA040463718

PATIENT
  Age: 75 Year
  Sex: Female
  Weight: 59 kg

DRUGS (8)
  1. FORTEO [Suspect]
     Indication: OSTEOPOROSIS
     Dosage: 20 UG DAY
     Dates: start: 20040212, end: 20041003
  2. EVISTA [Suspect]
     Indication: OSTEOPOROSIS
     Dosage: 60 MG DAY
     Dates: start: 19990101
  3. LIPITOR [Concomitant]
  4. FOSAMAX [Concomitant]
  5. CALCITRIOL [Concomitant]
  6. LEVOXYL [Concomitant]
  7. CALCIUM GLUCONATE [Concomitant]
  8. THYROXINE (LEVOTHYROXINE SODIUM) [Concomitant]

REACTIONS (6)
  - BLOOD CALCIUM INCREASED [None]
  - BLOOD PARATHYROID HORMONE INCREASED [None]
  - BONE DENSITY DECREASED [None]
  - DIZZINESS [None]
  - DRUG INEFFECTIVE [None]
  - NAUSEA [None]
